FAERS Safety Report 4846610-9 (Version None)
Quarter: 2005Q4

REPORT INFORMATION
  Report Type: 
  Country: None (occurrence: None)
  Receive Date: 20051202
  Receipt Date: 20051122
  Transmission Date: 20060501
  Serious: Yes (Hospitalization)
  Sender: FDA-Public Use
  Company Number: 8013471

PATIENT
  Age: 32 Year
  Sex: Male

DRUGS (4)
  1. KEPPRA [Suspect]
     Dosage: 1500 MG
  2. PHENYTOIN [Suspect]
  3. LAMICTAL [Suspect]
  4. OXCARBAZEPINE [Suspect]

REACTIONS (2)
  - GRAND MAL CONVULSION [None]
  - RENAL FAILURE [None]
